FAERS Safety Report 7797612-4 (Version None)
Quarter: 2011Q3

REPORT INFORMATION
  Report Type: 
  Country: None (occurrence: None)
  Receive Date: 20110926
  Receipt Date: 20110912
  Transmission Date: 20111222
  Serious: No
  Sender: FDA-Public Use
  Company Number: US-145249

PATIENT
  Age: 70 Year
  Sex: Female

DRUGS (1)
  1. WINRHO [Suspect]
     Dosage: (INTRAVENOUS (NOT OTHERWISE SPECIFIED))
     Route: 042

REACTIONS (4)
  - CHILLS [None]
  - BACK PAIN [None]
  - HEADACHE [None]
  - FATIGUE [None]
